FAERS Safety Report 5723412-2 (Version None)
Quarter: 2008Q2

REPORT INFORMATION
  Report Type: 
  Country: None (occurrence: None)
  Receive Date: 20080430
  Receipt Date: 20080423
  Transmission Date: 20081010
  Serious: Yes (Other)
  Sender: FDA-Public Use
  Company Number: PHHY2008JP06428

PATIENT

DRUGS (1)
  1. SANDIMMUNE [Suspect]
     Indication: STEM CELL TRANSPLANT
     Route: 042

REACTIONS (2)
  - ARTERITIS [None]
  - NERVOUS SYSTEM DISORDER [None]
